FAERS Safety Report 8139410-8 (Version None)
Quarter: 2012Q1

REPORT INFORMATION
  Report Type: 
  Country: None (occurrence: None)
  Receive Date: 20120215
  Receipt Date: 20120207
  Transmission Date: 20120608
  Serious: Yes (Hospitalization)
  Sender: FDA-Public Use
  Company Number: JP-BAXTER-2012BH004208

PATIENT
  Age: 70 Year
  Sex: Female
  Weight: 48 kg

DRUGS (16)
  1. POSTERISAN FORTE [Concomitant]
     Indication: HAEMORRHOIDS
     Route: 065
     Dates: start: 20111115
  2. RITUXIMAB [Suspect]
     Indication: NON-HODGKIN'S LYMPHOMA
     Route: 042
     Dates: start: 20111019, end: 20111117
  3. PANTOSIN [Concomitant]
     Indication: CONSTIPATION
     Route: 065
     Dates: start: 20100813
  4. VINCRISTINE SULFATE [Suspect]
     Indication: NON-HODGKIN'S LYMPHOMA
     Route: 042
     Dates: start: 20111019, end: 20111117
  5. SELBEX [Concomitant]
     Indication: GASTRITIS
     Route: 065
     Dates: start: 20100727
  6. LENDORMIN [Concomitant]
     Indication: INSOMNIA
     Route: 065
     Dates: start: 20100822
  7. PREDNISONE TAB [Suspect]
     Indication: NON-HODGKIN'S LYMPHOMA
     Route: 048
     Dates: start: 20111019, end: 20111121
  8. LANSOPRAZOLE [Concomitant]
     Indication: GASTRITIS
     Route: 065
     Dates: start: 20100829
  9. CYCLOPHOSPHAMIDE [Suspect]
     Indication: NON-HODGKIN'S LYMPHOMA
     Route: 042
     Dates: start: 20111019, end: 20111117
  10. OXYCODONE HYDROCHLORIDE [Suspect]
     Indication: CANCER PAIN
     Route: 048
     Dates: start: 20111012
  11. MAGNESIUM OXIDE [Concomitant]
     Indication: CONSTIPATION
     Route: 065
     Dates: start: 20100813
  12. RHUBARB DRY EXTRACT [Concomitant]
     Indication: CONSTIPATION
     Route: 065
     Dates: start: 20111012
  13. SENNA ALEXANDRINA LEAF [Concomitant]
     Indication: CONSTIPATION
     Route: 065
     Dates: start: 20111012
  14. LIVOSTIN [Concomitant]
     Indication: CONJUNCTIVITIS ALLERGIC
     Route: 065
  15. HYALEIN [Concomitant]
     Indication: CONJUNCTIVITIS ALLERGIC
     Route: 065
  16. STUDY DRUG [Suspect]
     Indication: NON-HODGKIN'S LYMPHOMA
     Route: 042
     Dates: start: 20111020, end: 20111118

REACTIONS (1)
  - UPPER GASTROINTESTINAL HAEMORRHAGE [None]
